FAERS Safety Report 9949254 (Version 2)
Quarter: 2014Q2

REPORT INFORMATION
  Report Type: Spontaneous
  Country: US (occurrence: US)
  Receive Date: 20140304
  Receipt Date: 20140421
  Transmission Date: 20141212
  Serious: No
  Sender: FDA-Public Use
  Company Number: US-PFIZER INC-2014058899

PATIENT
  Age: 92 Year
  Sex: 0

DRUGS (15)
  1. XALATAN [Suspect]
     Dosage: 1 GTT OU, QHS
     Route: 047
  2. TRAVATAN [Suspect]
     Dosage: UNK
  3. TIMOLOL [Suspect]
     Dosage: UNK
  4. COLCHICINE [Suspect]
     Dosage: UNK
  5. TETANUS VACCINE [Suspect]
     Indication: IMMUNISATION
     Dosage: UNK
  6. BACTRIM [Suspect]
     Dosage: UNK
  7. METFORMIN [Concomitant]
     Dosage: UNK
  8. ATENOLOL [Concomitant]
     Dosage: UNK
  9. ASPIRIN [Concomitant]
     Dosage: UNK
  10. CARVEDILOL [Concomitant]
     Dosage: UNK
  11. DIGOXIN [Concomitant]
     Dosage: UNK
  12. DILTIAZEM [Concomitant]
     Dosage: UNK
  13. FERROUS SULFATE [Concomitant]
     Dosage: UNK
  14. FUROSEMIDE [Concomitant]
     Dosage: UNK
  15. LISINOPRIL [Concomitant]
     Dosage: UNK

REACTIONS (3)
  - Drug hypersensitivity [Unknown]
  - Off label use [Unknown]
  - Drug ineffective [Unknown]
